FAERS Safety Report 18510474 (Version 2)
Quarter: 2022Q2

REPORT INFORMATION
  Report Type: Spontaneous
  Country: US (occurrence: US)
  Receive Date: 20201117
  Receipt Date: 20220526
  Transmission Date: 20220721
  Serious: Yes (Other)
  Sender: FDA-Public Use
  Company Number: US-NOVARTISPH-NVSC2020US305595

PATIENT
  Sex: Female

DRUGS (2)
  1. DABRAFENIB [Suspect]
     Active Substance: DABRAFENIB
     Indication: Langerhans^ cell histiocytosis
     Dosage: UNK
     Route: 065
  2. DABRAFENIB [Suspect]
     Active Substance: DABRAFENIB
     Indication: Haemophagocytic lymphohistiocytosis

REACTIONS (3)
  - Acute myeloid leukaemia [Unknown]
  - Second primary malignancy [Unknown]
  - Product use in unapproved indication [Unknown]
